FAERS Safety Report 4301123-8 (Version None)
Quarter: 2004Q1

REPORT INFORMATION
  Report Type: 
  Country: None (occurrence: None)
  Receive Date: 20040219
  Receipt Date: 20040216
  Transmission Date: 20041129
  Serious: Yes (Disabling)
  Sender: FDA-Public Use
  Company Number: 7431

PATIENT
  Age: 60 Year
  Sex: Female

DRUGS (1)
  1. METHOTREXATE [Suspect]
     Indication: RHEUMATOID ARTHRITIS
     Dosage: 5 MG FREQ PO
     Route: 048
     Dates: end: 20031118

REACTIONS (3)
  - FISTULA [None]
  - LIP ULCERATION [None]
  - LYMPHOPROLIFERATIVE DISORDER [None]
